FAERS Safety Report 15807652 (Version 1)
Quarter: 2019Q1

REPORT INFORMATION
  Report Type: Spontaneous
  Country: US (occurrence: US)
  Receive Date: 20190110
  Receipt Date: 20190110
  Transmission Date: 20190417
  Serious: Yes (Death)
  Sender: FDA-Public Use
  Company Number: None

PATIENT
  Age: 71 Year
  Sex: Male
  Weight: 64.48 kg

DRUGS (4)
  1. CAPECITABINE. [Suspect]
     Active Substance: CAPECITABINE
     Indication: HISTIOCYTIC SARCOMA
     Route: 048
     Dates: start: 20180730, end: 20190110
  2. CAPECITABINE. [Suspect]
     Active Substance: CAPECITABINE
     Indication: SQUAMOUS CELL CARCINOMA
     Route: 048
     Dates: start: 20180730, end: 20190110
  3. CAPECITABINE. [Suspect]
     Active Substance: CAPECITABINE
     Indication: HISTIOCYTIC SARCOMA
     Route: 048
     Dates: start: 20181029, end: 20190110
  4. CAPECITABINE. [Suspect]
     Active Substance: CAPECITABINE
     Indication: SQUAMOUS CELL CARCINOMA
     Route: 048
     Dates: start: 20181029, end: 20190110

REACTIONS (1)
  - Death [None]
